FAERS Safety Report 17374364 (Version 2)
Quarter: 2020Q1

REPORT INFORMATION
  Report Type: Spontaneous
  Country: US (occurrence: US)
  Receive Date: 20200205
  Receipt Date: 20200312
  Transmission Date: 20200409
  Serious: Yes (Other)
  Sender: FDA-Public Use
  Company Number: US-PFIZER INC-2020049044

PATIENT
  Age: 51 Year
  Sex: Female

DRUGS (4)
  1. NEURONTIN [Suspect]
     Active Substance: GABAPENTIN
     Dosage: 600 MG, UNK
  2. NEURONTIN [Suspect]
     Active Substance: GABAPENTIN
     Indication: PAIN
     Dosage: 100 MG, UNK
  3. NEURONTIN [Suspect]
     Active Substance: GABAPENTIN
     Dosage: 300 MG, DAILY
  4. NEURONTIN [Suspect]
     Active Substance: GABAPENTIN
     Dosage: 100 MG, 1X/DAY

REACTIONS (11)
  - Choking [Unknown]
  - Gastrooesophageal reflux disease [Unknown]
  - Drug hypersensitivity [Unknown]
  - Vision blurred [Recovered/Resolved]
  - Restless legs syndrome [Unknown]
  - Dysphagia [Unknown]
  - Off label use [Unknown]
  - Dyspepsia [Unknown]
  - Drug ineffective for unapproved indication [Unknown]
  - Insomnia [Unknown]
  - Hiatus hernia [Unknown]

NARRATIVE: CASE EVENT DATE: 20040908
